FAERS Safety Report 24882494 (Version 3)
Quarter: 2025Q3

REPORT INFORMATION
  Report Type: Other
  Country: US (occurrence: US)
  Receive Date: 20250124
  Receipt Date: 20250919
  Transmission Date: 20251021
  Serious: No
  Sender: TRAVERE THERAPEUTICS
  Company Number: US-TRAVERE-2025TVT00011

PATIENT
  Age: 61 Year
  Sex: Male

DRUGS (2)
  1. FILSPARI [Suspect]
     Active Substance: SPARSENTAN
     Indication: IgA nephropathy
     Dosage: TAKE 1 TABLET BY MOUTH 1 TIME A DAY FOR DAYS 1-14 THEN 2 TABLETS BY MOUTH 1 TIME A DAY ON DAYS 15-30
     Route: 048
     Dates: start: 202412
  2. FILSPARI [Suspect]
     Active Substance: SPARSENTAN
     Route: 048
     Dates: start: 20241226

REACTIONS (3)
  - Reflux gastritis [Unknown]
  - Dizziness [Unknown]
  - Balance disorder [Unknown]
